FAERS Safety Report 8095996 (Version 5)
Quarter: 2013Q2

REPORT INFORMATION
  Report Type: Spontaneous
  Country: US (occurrence: US)
  Receive Date: 20110818
  Receipt Date: 20130531
  Transmission Date: 20140414
  Serious: Yes (Hospitalization, Other)
  Sender: FDA-Public Use
  Company Number: US-ROCHE-797368

PATIENT
  Age: 23 Year
  Sex: Male
  Weight: 63.56 kg

DRUGS (1)
  1. ACCUTANE [Suspect]
     Indication: ACNE
     Dosage: 40 MG TO 80 MG
     Route: 048
     Dates: start: 19941122, end: 199505

REACTIONS (6)
  - Colitis ulcerative [Unknown]
  - Inflammatory bowel disease [Unknown]
  - Depression [Unknown]
  - Crohn^s disease [Unknown]
  - Anal fistula [Unknown]
  - Blood triglycerides increased [Unknown]
